FAERS Safety Report 25578435 (Version 1)
Quarter: 2025Q3

REPORT INFORMATION
  Report Type: Spontaneous
  Country: US (occurrence: US)
  Receive Date: 20250718
  Receipt Date: 20250718
  Transmission Date: 20251021
  Serious: Yes (Other)
  Sender: FRESENIUS KABI
  Company Number: US-FreseniusKabi-FK202509599

PATIENT
  Age: 49 Year
  Sex: Female
  Weight: 114 kg

DRUGS (4)
  1. TYENNE [Suspect]
     Active Substance: TOCILIZUMAB-AAZG
     Indication: Rheumatoid arthritis
     Dates: start: 202506, end: 202506
  2. TYENNE [Suspect]
     Active Substance: TOCILIZUMAB-AAZG
     Dates: start: 20250709, end: 20250709
  3. GABAPENTIN [Concomitant]
     Active Substance: GABAPENTIN
     Indication: Product used for unknown indication
     Dosage: DOSE ASKED BUT UNKNOWN
     Route: 048
  4. PREDNISONE [Concomitant]
     Active Substance: PREDNISONE
     Indication: Product used for unknown indication
     Dosage: DOSE ASKED BUT UNKNOWN
     Route: 048

REACTIONS (1)
  - Loss of consciousness [Unknown]

NARRATIVE: CASE EVENT DATE: 20250709
